FAERS Safety Report 14398396 (Version 1)
Quarter: 2018Q1

REPORT INFORMATION
  Report Type: Spontaneous
  Country: US (occurrence: US)
  Receive Date: 20180116
  Receipt Date: 20180116
  Transmission Date: 20180509
  Serious: Yes (Hospitalization)
  Sender: FDA-Public Use
  Company Number: US-ROCHE-2003841

PATIENT
  Age: 18 Year
  Sex: Male

DRUGS (10)
  1. ETANERCEPT [Concomitant]
     Active Substance: ETANERCEPT
     Dosage: DOSAGE IS UNCERTAIN.
     Route: 065
     Dates: start: 20150323
  2. METHYLPREDNISOLONE. [Concomitant]
     Active Substance: METHYLPREDNISOLONE
     Dosage: DOSAGE IS UNCERTAIN.
     Route: 065
  3. ACTEMRA [Suspect]
     Active Substance: TOCILIZUMAB
     Dosage: THE FRACTIONATION DOSE FREQUENCY IS UNCERTAIN. ?DOSE INTERVAL UNCERTAINTY
     Route: 042
     Dates: start: 20150323, end: 20150323
  4. ACTEMRA [Suspect]
     Active Substance: TOCILIZUMAB
     Route: 042
     Dates: start: 20150403, end: 20150403
  5. ACETAMINOPHEN. [Concomitant]
     Active Substance: ACETAMINOPHEN
     Dosage: DOSAGE IS UNCERTAIN.
     Route: 065
  6. VASOPRESSIN. [Concomitant]
     Active Substance: VASOPRESSIN
     Dosage: DOSAGE IS UNCERTAIN.
     Route: 065
     Dates: start: 20150323
  7. ACTEMRA [Suspect]
     Active Substance: TOCILIZUMAB
     Indication: B-CELL TYPE ACUTE LEUKAEMIA
     Dosage: THE FRACTIONATION DOSE FREQUENCY IS UNCERTAIN. ?DOSE INTERVAL UNCERTAINTY
     Route: 042
     Dates: start: 20150321, end: 20150321
  8. TISAGENLECLEUCEL. [Concomitant]
     Active Substance: TISAGENLECLEUCEL
     Dosage: DOSAGE IS UNCERTAIN.
     Route: 041
     Dates: start: 20150311
  9. CEFEPIME DIHYDROCHLORIDE [Concomitant]
     Active Substance: CEFEPIME HYDROCHLORIDE
     Dosage: DOSAGE IS UNCERTAIN.
     Route: 065
  10. MILRINONE [Concomitant]
     Active Substance: MILRINONE
     Dosage: DOSAGE IS UNCERTAIN.
     Route: 065
     Dates: start: 20150323

REACTIONS (1)
  - Interstitial lung disease [Unknown]

NARRATIVE: CASE EVENT DATE: 20150402
